FAERS Safety Report 7822944-0 (Version None)
Quarter: 2011Q4

REPORT INFORMATION
  Report Type: 
  Country: None (occurrence: None)
  Receive Date: 20111018
  Receipt Date: 20110216
  Transmission Date: 20120403
  Serious: No
  Sender: FDA-Public Use
  Company Number: US-ASTRAZENECA-2010SE55715

PATIENT
  Age: 75 Year
  Sex: Male
  Weight: 79.4 kg

DRUGS (11)
  1. SYMBICORT [Suspect]
     Dosage: 160/4.5 MCG 10.2 GM 2 PUFFS TWICE A DAY
     Route: 055
     Dates: start: 20101105, end: 20101130
  2. ALBUTEROL [Concomitant]
     Indication: DYSPNOEA
     Dosage: TWO PUFFS
     Dates: start: 20101105
  3. SYMBICORT [Suspect]
     Dosage: 160/4.5 MCG 10.2 GM 2 PUFFS TWICE A DAY
     Route: 055
     Dates: start: 20101105, end: 20101130
  4. HYDROMORPHONE HCL [Concomitant]
     Indication: CHRONIC OBSTRUCTIVE PULMONARY DISEASE
     Dosage: ONE OR TWO AT NIGHT
     Route: 048
     Dates: start: 20101105
  5. METOPROLOL TAR [Concomitant]
     Indication: HYPERTENSION
     Route: 048
     Dates: start: 20101126
  6. HYDROMORPHONE HCL [Concomitant]
     Indication: DYSPNOEA
     Dosage: ONE OR TWO AT NIGHT
     Route: 048
     Dates: start: 20101105
  7. CRESTOR [Concomitant]
     Indication: HYPERLIPIDAEMIA
     Route: 048
     Dates: start: 20101106
  8. ALBUTEROL [Concomitant]
     Indication: CHRONIC OBSTRUCTIVE PULMONARY DISEASE
     Dosage: TWO PUFFS
     Dates: start: 20101105
  9. EPLERENONE [Concomitant]
     Indication: HYPERTENSION
     Route: 048
     Dates: start: 20101108
  10. TORSEMIDE [Concomitant]
     Indication: OEDEMA PERIPHERAL
     Route: 048
     Dates: start: 20100920
  11. SYMBICORT [Suspect]
     Indication: CHRONIC OBSTRUCTIVE PULMONARY DISEASE
     Dosage: 160/4.5 MCG 10.2 GM 2 PUFFS TWICE A DAY
     Route: 055
     Dates: start: 20100802, end: 20101130

REACTIONS (3)
  - DRUG DOSE OMISSION [None]
  - DRUG INEFFECTIVE [None]
  - WHEEZING [None]
